FAERS Safety Report 16956458 (Version 1)
Quarter: 2019Q4

REPORT INFORMATION
  Report Type: Spontaneous
  Country: CA (occurrence: CA)
  Receive Date: 20191024
  Receipt Date: 20191024
  Transmission Date: 20200122
  Serious: Yes (Other)
  Sender: FDA-Public Use
  Company Number: CA-PFIZER INC-2019460687

PATIENT
  Age: 58 Week

DRUGS (8)
  1. LEVETIRACETAM. [Concomitant]
     Active Substance: LEVETIRACETAM
     Dosage: UNK
  2. PHENOBARBITAL. [Concomitant]
     Active Substance: PHENOBARBITAL
     Dosage: UNK
  3. VALPROIC ACID. [Concomitant]
     Active Substance: VALPROIC ACID
     Dosage: UNK
  4. KETAMINE HYDROCHLORIDE. [Concomitant]
     Active Substance: KETAMINE HYDROCHLORIDE
     Dosage: UNK
  5. PHENYTOIN. [Concomitant]
     Active Substance: PHENYTOIN
     Dosage: UNK
  6. MIDAZOLAM [Suspect]
     Active Substance: MIDAZOLAM HYDROCHLORIDE
     Indication: PROPHYLAXIS
     Dosage: UNK
  7. PROPOFOL. [Suspect]
     Active Substance: PROPOFOL
     Indication: PROPHYLAXIS
     Dosage: UNK
  8. ISOFLURANE USP [Concomitant]
     Active Substance: ISOFLURANE
     Dosage: UNK

REACTIONS (1)
  - Intestinal ischaemia [Unknown]
